FAERS Safety Report 9636230 (Version 1)
Quarter: 2013Q4

REPORT INFORMATION
  Report Type: Spontaneous
  Country: TR (occurrence: TR)
  Receive Date: 20131021
  Receipt Date: 20131021
  Transmission Date: 20140711
  Serious: Yes (Other)
  Sender: FDA-Public Use
  Company Number: TR-ACTAVIS-2013-18449

PATIENT
  Age: 8 Year
  Sex: Male

DRUGS (3)
  1. RISPERIDONE (UNKNOWN) [Suspect]
     Indication: AGGRESSION
     Dosage: 0.5 MG, DAILY
     Route: 065
  2. RISPERIDONE (UNKNOWN) [Suspect]
     Indication: IRRITABILITY
  3. RISPERIDONE (UNKNOWN) [Suspect]
     Indication: SELF INJURIOUS BEHAVIOUR

REACTIONS (1)
  - Paroxysmal perceptual alteration [Recovered/Resolved]
